FAERS Safety Report 6015773-4 (Version None)
Quarter: 2008Q4

REPORT INFORMATION
  Report Type: 
  Country: None (occurrence: None)
  Receive Date: 20081222
  Receipt Date: 20080718
  Transmission Date: 20090506
  Serious: No
  Sender: FDA-Public Use
  Company Number: US-BAYER-200813136BCC

PATIENT
  Age: 79 Year
  Sex: Female
  Weight: 73 kg

DRUGS (5)
  1. ALEVE [Suspect]
     Indication: BACK PAIN
     Dosage: AS USED: 220 MG  UNIT DOSE: 220 MG
     Route: 048
  2. ALBUTEROL [Concomitant]
  3. PULMICORT-100 [Concomitant]
  4. DUONEB [Concomitant]
  5. FOSAMAX [Concomitant]

REACTIONS (1)
  - BACK PAIN [None]
